FAERS Safety Report 18981104 (Version 2)
Quarter: 2021Q2

REPORT INFORMATION
  Report Type: Spontaneous
  Country: FR (occurrence: FR)
  Receive Date: 20210308
  Receipt Date: 20210412
  Transmission Date: 20210717
  Serious: Yes (Other)
  Sender: FDA-Public Use
  Company Number: FR-ALIMERA SCIENCES INC.-FR-A16013-21-000035

PATIENT

DRUGS (1)
  1. ILUVIEN [Suspect]
     Active Substance: FLUOCINOLONE ACETONIDE
     Indication: DIABETIC RETINAL OEDEMA
     Dosage: 0.25 MICROGRAM, QD? UNKNOWN EYE
     Route: 031
     Dates: start: 20200515

REACTIONS (3)
  - Vitrectomy [Recovered/Resolved]
  - Ocular hypertension [Recovered/Resolved]
  - Medical device removal [Recovered/Resolved]

NARRATIVE: CASE EVENT DATE: 20210218
